FAERS Safety Report 17886471 (Version 2)
Quarter: 2020Q2

REPORT INFORMATION
  Report Type: Spontaneous
  Country: US (occurrence: US)
  Receive Date: 20200611
  Receipt Date: 20200630
  Transmission Date: 20200714
  Serious: Yes (Life-Threatening, Hospitalization, Other)
  Sender: FDA-Public Use
  Company Number: US-GILEAD-2020-0471777

PATIENT
  Age: 35 Year
  Sex: Male
  Weight: 75.3 kg

DRUGS (8)
  1. REMDESIVIR. [Suspect]
     Active Substance: REMDESIVIR
     Dosage: 200 MG, ONCE
     Route: 042
     Dates: start: 20200528, end: 20200528
  2. MELATONIN [Concomitant]
     Active Substance: MELATONIN
     Dosage: UNK
     Dates: start: 20200528, end: 20200601
  3. ATORVASTATIN [Concomitant]
     Active Substance: ATORVASTATIN
     Indication: HYPERLIPIDAEMIA
     Dosage: UNK
     Dates: start: 20200528, end: 20200601
  4. METHYLPREDNISOLONE. [Concomitant]
     Active Substance: METHYLPREDNISOLONE
     Dosage: UNK
     Dates: start: 20200528, end: 20200531
  5. REMDESIVIR. [Suspect]
     Active Substance: REMDESIVIR
     Indication: COVID-19
     Dosage: 100 MG, QD
     Route: 042
     Dates: start: 20200529, end: 20200531
  6. CHOLECALCIFEROL [Concomitant]
     Active Substance: CHOLECALCIFEROL
     Dosage: 2000 IU, QD
     Dates: start: 20200528, end: 20200601
  7. ENOXAPARIN [Concomitant]
     Active Substance: ENOXAPARIN
     Indication: THROMBOSIS PROPHYLAXIS
     Dosage: UNK
     Dates: start: 20200528, end: 20200601
  8. HUMALOG [Concomitant]
     Active Substance: INSULIN LISPRO
     Dosage: UNK
     Dates: start: 20200529, end: 20200601

REACTIONS (2)
  - Alanine aminotransferase increased [Recovered/Resolved]
  - Pleuritic pain [Recovered/Resolved]

NARRATIVE: CASE EVENT DATE: 20200528
